FAERS Safety Report 17501983 (Version 1)
Quarter: 2020Q1

REPORT INFORMATION
  Report Type: Spontaneous
  Country: US (occurrence: US)
  Receive Date: 20200305
  Receipt Date: 20200305
  Transmission Date: 20200409
  Serious: Yes (Hospitalization, Other)
  Sender: FDA-Public Use
  Company Number: US-SA-2020SA056799

PATIENT
  Age: 61 Year
  Sex: Female

DRUGS (4)
  1. TRAZODONE HYDROCHLORIDE. [Suspect]
     Active Substance: TRAZODONE HYDROCHLORIDE
     Dosage: 300 MG, HS
     Route: 065
     Dates: start: 2015
  2. AMBIEN CR [Suspect]
     Active Substance: ZOLPIDEM TARTRATE
     Indication: INSOMNIA
  3. AMBIEN [Suspect]
     Active Substance: ZOLPIDEM TARTRATE
     Indication: INSOMNIA
     Route: 065
  4. PREGABALIN. [Suspect]
     Active Substance: PREGABALIN
     Dosage: 1 DF, TID
     Route: 065
     Dates: start: 2010

REACTIONS (13)
  - Feeling abnormal [Unknown]
  - Neuralgia [Unknown]
  - Stress [Not Recovered/Not Resolved]
  - Nightmare [Unknown]
  - Depression [Recovering/Resolving]
  - Pain [Unknown]
  - Drug dependence [Unknown]
  - Dyspnoea [Unknown]
  - Drug ineffective [Unknown]
  - Post procedural haemorrhage [Unknown]
  - Lung neoplasm malignant [Unknown]
  - Weight decreased [Recovering/Resolving]
  - Anxiety [Unknown]

NARRATIVE: CASE EVENT DATE: 2019
